FAERS Safety Report 7230834-X (Version None)
Quarter: 2011Q1

REPORT INFORMATION
  Report Type: 
  Country: None (occurrence: None)
  Receive Date: 20110107
  Receipt Date: 20101223
  Transmission Date: 20110831
  Serious: Yes (Other)
  Sender: FDA-Public Use
  Company Number: 024732

PATIENT

DRUGS (7)
  1. LEVETIRACETAM [Suspect]
     Indication: DYSKINESIA
     Dosage: (125 MG QD, 1 TAKEN IN THE EVENING), (250 MG), (375 MG), (500 MG)
  2. LEVETIRACETAM [Suspect]
     Indication: DYSKINESIA
     Dosage: (125 MG QD, 1 TAKEN IN THE EVENING), (250 MG), (375 MG), (500 MG)
  3. CARBIDOPA [Concomitant]
  4. PRAMIPEXOLE [Concomitant]
  5. ENTACAPONE [Concomitant]
  6. LEVODOPA [Concomitant]
  7. BENSERAZIDE [Concomitant]

REACTIONS (2)
  - PARKINSON'S DISEASE [None]
  - OFF LABEL USE [None]
